FAERS Safety Report 5940468-2 (Version None)
Quarter: 2008Q4

REPORT INFORMATION
  Report Type: 
  Country: None (occurrence: None)
  Receive Date: 20081104
  Receipt Date: 20081030
  Transmission Date: 20090506
  Serious: Yes (Other)
  Sender: FDA-Public Use
  Company Number: US-ASTRAZENECA-2008UW10037

PATIENT
  Age: 62 Year
  Sex: Male
  Weight: 97.6 kg

DRUGS (2)
  1. ZOLADEX [Suspect]
     Indication: PROSTATE CANCER
     Dosage: THREE INJECTIONS
     Route: 058
     Dates: end: 20071001
  2. UNSPECIFIED BLOOD PRESSURE MEDICATION [Concomitant]

REACTIONS (12)
  - CHEST PAIN [None]
  - DIARRHOEA [None]
  - DRY SKIN [None]
  - DYSPHONIA [None]
  - EXOSTOSIS [None]
  - HEADACHE [None]
  - HOT FLUSH [None]
  - HYPERHIDROSIS [None]
  - INSOMNIA [None]
  - MOOD ALTERED [None]
  - MUSCLE SPASMS [None]
  - OSTEOARTHRITIS [None]
